FAERS Safety Report 25137313 (Version 1)
Quarter: 2025Q1

REPORT INFORMATION
  Report Type: Spontaneous
  Country: CA (occurrence: CA)
  Receive Date: 20250329
  Receipt Date: 20250329
  Transmission Date: 20250409
  Serious: Yes (Life-Threatening, Hospitalization)
  Sender: ACCORD
  Company Number: None

PATIENT
  Age: 16 Year
  Sex: Female
  Weight: 48 kg

DRUGS (42)
  1. GEMCITABINE [Suspect]
     Active Substance: GEMCITABINE
     Indication: Bone marrow conditioning regimen
     Route: 042
  2. BUSULFAN [Suspect]
     Active Substance: BUSULFAN
     Indication: Bone marrow conditioning regimen
     Route: 042
  3. MELPHALAN [Suspect]
     Active Substance: MELPHALAN
     Indication: Bone marrow conditioning regimen
     Route: 042
  4. AMITRIPTYLINE [Concomitant]
     Active Substance: AMITRIPTYLINE
  5. ATROPINE [Concomitant]
     Active Substance: ATROPINE
  6. CALCIUM [Concomitant]
     Active Substance: CALCIUM
  7. CEFTAZIDIME [Concomitant]
     Active Substance: CEFTAZIDIME
  8. CETIRIZINE [Concomitant]
     Active Substance: CETIRIZINE HYDROCHLORIDE
  9. CHOLECALCIFEROL [Concomitant]
     Active Substance: CHOLECALCIFEROL
  10. CLONIDINE [Concomitant]
     Active Substance: CLONIDINE
  11. DEXAMETHASONE [Concomitant]
     Active Substance: DEXAMETHASONE
     Route: 014
  12. DICYCLOMINE HYDROCHLORIDE [Concomitant]
     Active Substance: DICYCLOMINE HYDROCHLORIDE
  13. FAMOTIDINE [Concomitant]
     Active Substance: FAMOTIDINE
  14. FLUCONAZOLE [Concomitant]
     Active Substance: FLUCONAZOLE
  15. GABAPENTIN [Concomitant]
     Active Substance: GABAPENTIN
  16. GRANISETRON [Concomitant]
     Active Substance: GRANISETRON
  17. LACTULOSE [Concomitant]
     Active Substance: LACTULOSE
     Route: 048
  18. LANSOPRAZOLE [Concomitant]
     Active Substance: LANSOPRAZOLE
  19. LEUPROLIDE [Concomitant]
     Active Substance: LEUPROLIDE
  20. LEVETIRACETAM [Concomitant]
     Active Substance: LEVETIRACETAM
  21. LORAZEPAM [Concomitant]
     Active Substance: LORAZEPAM
  22. MELATONIN [Concomitant]
     Active Substance: MELATONIN
  23. MEROPENEM [Concomitant]
     Active Substance: MEROPENEM
     Route: 042
  24. METHYLPREDNISOLONE [Concomitant]
     Active Substance: METHYLPREDNISOLONE
  25. METOCLOPRAMIDE [Concomitant]
     Active Substance: METOCLOPRAMIDE
  26. MYCAMINE [Concomitant]
     Active Substance: MICAFUNGIN SODIUM
     Route: 042
  27. NIFEDIPINE [Concomitant]
     Active Substance: NIFEDIPINE
  28. NORETHINDRONE [Concomitant]
     Active Substance: NORETHINDRONE
  29. OLANZAPINE [Concomitant]
     Active Substance: OLANZAPINE
  30. ONDANSETRON [Concomitant]
     Active Substance: ONDANSETRON
  31. PANTOPRAZOLE [Concomitant]
     Active Substance: PANTOPRAZOLE
     Route: 042
  32. PIPERACILLIN AND TAZOBACTAM [Concomitant]
     Active Substance: PIPERACILLIN SODIUM\TAZOBACTAM SODIUM
  33. POLYETHYLENE GLYCOL [Concomitant]
     Active Substance: POLYETHYLENE GLYCOL
  34. PREDNISONE [Concomitant]
     Active Substance: PREDNISONE
  35. RIZATRIPTAN [Concomitant]
     Active Substance: RIZATRIPTAN
  36. SODIUM PHOSPHATE [Concomitant]
     Active Substance: SODIUM PHOSPHATE
  37. TOPIRAMATE [Concomitant]
     Active Substance: TOPIRAMATE
     Route: 048
  38. TRAZODONE [Concomitant]
     Active Substance: TRAZODONE HYDROCHLORIDE
  39. SULFAMETHOXAZOLE\TRIMETHOPRIM [Concomitant]
     Active Substance: SULFAMETHOXAZOLE\TRIMETHOPRIM
  40. URSODIOL [Concomitant]
     Active Substance: URSODIOL
  41. VALACYCLOVIR HYDROCHLORIDE [Concomitant]
     Active Substance: VALACYCLOVIR HYDROCHLORIDE
  42. VANCOMYCIN [Concomitant]
     Active Substance: VANCOMYCIN

REACTIONS (6)
  - Febrile neutropenia [Recovered/Resolved]
  - Diarrhoea [Recovered/Resolved]
  - Oesophageal pain [Recovered/Resolved]
  - Thrombocytopenia [Recovered/Resolved]
  - Aplastic anaemia [Recovered/Resolved]
  - Mucosal inflammation [Recovered/Resolved]
